FAERS Safety Report 23319383 (Version 1)
Quarter: 2023Q4

REPORT INFORMATION
  Report Type: Spontaneous
  Country: FR (occurrence: FR)
  Receive Date: 20231220
  Receipt Date: 20231220
  Transmission Date: 20240109
  Serious: Yes (Life-Threatening)
  Sender: FDA-Public Use
  Company Number: None

PATIENT
  Age: 98 Year
  Weight: 62 kg

DRUGS (4)
  1. DOXYCYCLINE [Suspect]
     Active Substance: DOXYCYCLINE
     Indication: Postoperative wound infection
     Dosage: 150 MG X 2/JOUR
     Route: 048
     Dates: start: 20230915, end: 20231102
  2. PREDNISONE [Interacting]
     Active Substance: PREDNISONE
     Indication: Hypereosinophilic syndrome
     Route: 048
  3. CLINDAMYCIN HYDROCHLORIDE [Interacting]
     Active Substance: CLINDAMYCIN HYDROCHLORIDE
     Indication: Postoperative wound infection
     Dosage: 600 MG X 3 /J
     Route: 048
     Dates: start: 20230915, end: 20231102
  4. ELIQUIS [Interacting]
     Active Substance: APIXABAN
     Indication: Pulmonary embolism
     Route: 048
     Dates: start: 20230928, end: 20231003

REACTIONS (3)
  - Oesophagitis [Recovering/Resolving]
  - Shock haemorrhagic [Recovering/Resolving]
  - Gastric ulcer [Recovering/Resolving]

NARRATIVE: CASE EVENT DATE: 20231002
